FAERS Safety Report 15934857 (Version 4)
Quarter: 2019Q2

REPORT INFORMATION
  Report Type: Spontaneous
  Country: BR (occurrence: BR)
  Receive Date: 20190207
  Receipt Date: 20190603
  Transmission Date: 20190711
  Serious: Yes (Other)
  Sender: FDA-Public Use
  Company Number: BR-PFIZER INC-2018533781

PATIENT
  Age: 64 Year
  Sex: Female

DRUGS (4)
  1. LORAX [LORAZEPAM] [Suspect]
     Active Substance: LORAZEPAM
     Dosage: 4 MG, UNK (2 TABLETS OF 2MG)
  2. LORAX [LORAZEPAM] [Suspect]
     Active Substance: LORAZEPAM
     Dosage: 2 MG, UNK
  3. LORAX [LORAZEPAM] [Suspect]
     Active Substance: LORAZEPAM
     Dosage: 4 MG, 2X/DAY (4 TABLETS TWICE A DAY)
  4. LORAX [LORAZEPAM] [Suspect]
     Active Substance: LORAZEPAM
     Dosage: 1 MG, UNK
     Dates: start: 1975

REACTIONS (5)
  - Product use issue [Unknown]
  - Suicidal ideation [Unknown]
  - Drug dependence [Unknown]
  - Drug ineffective [Unknown]
  - Feeling abnormal [Not Recovered/Not Resolved]
